FAERS Safety Report 8254983-2 (Version None)
Quarter: 2012Q2

REPORT INFORMATION
  Report Type: 
  Country: None (occurrence: None)
  Receive Date: 20120403
  Receipt Date: 20120322
  Transmission Date: 20120825
  Serious: Yes (Hospitalization)
  Sender: FDA-Public Use
  Company Number: US-SANOFI-AVENTIS-2012SA015340

PATIENT
  Age: 69 Year
  Sex: Male
  Weight: 100.9 kg

DRUGS (12)
  1. PLAVIX [Concomitant]
  2. CALCIUM ACETATE [Concomitant]
  3. LANTUS [Suspect]
     Indication: TYPE 2 DIABETES MELLITUS
     Dosage: DOSE:25 UNIT(S)
     Route: 058
     Dates: start: 20100101
  4. METOPROLOL TARTRATE [Concomitant]
  5. HYDRALAZINE HCL [Concomitant]
  6. SIMVASTATIN [Concomitant]
  7. IRON [Concomitant]
     Dosage: 2 IN THE MORNING AND ONE AT NIGHT
  8. ALL OTHER THERAPEUTIC PRODUCTS [Concomitant]
  9. METOLAZONE [Concomitant]
  10. SOLOSTAR [Suspect]
     Indication: TYPE 2 DIABETES MELLITUS
     Dates: start: 20100101
  11. TAMSULOSIN HCL [Concomitant]
     Dosage: 1 TABLET DAILY AS NEEDED
  12. FUROSEMIDE [Concomitant]

REACTIONS (5)
  - INCREASED UPPER AIRWAY SECRETION [None]
  - BRONCHITIS [None]
  - OEDEMA PERIPHERAL [None]
  - CARDIAC FAILURE CONGESTIVE [None]
  - HAEMORRHAGE [None]
